FAERS Safety Report 8858891 (Version 1)
Quarter: 2012Q4

REPORT INFORMATION
  Report Type: 
  Country: US (occurrence: US)
  Receive Date: 20121024
  Receipt Date: 20121024
  Transmission Date: 20130627
  Serious: No
  Sender: FDA-Public Use
  Company Number: US-VERTEX PHARMACEUTICAL INC.-2012-023403

PATIENT
  Age: 52 Year
  Sex: Male
  Weight: 102 kg

DRUGS (5)
  1. VX-950 [Suspect]
     Indication: HEPATITIS C
     Dosage: 750 mg, tid
     Route: 048
     Dates: start: 20120723, end: 201210
  2. RIBASPHERE [Concomitant]
     Indication: HEPATITIS C
     Dosage: 600 mg, bid
     Route: 048
     Dates: start: 20120723
  3. PEGASYS [Concomitant]
     Indication: HEPATITIS C
     Dosage: 90 ?g, weekly
     Route: 058
     Dates: start: 20120723
  4. PROCRIT                            /00909301/ [Concomitant]
  5. NEUPOGEN [Concomitant]

REACTIONS (1)
  - Pruritus [Unknown]
